FAERS Safety Report 19036756 (Version 1)
Quarter: 2021Q1

REPORT INFORMATION
  Report Type: Spontaneous
  Country: IN (occurrence: IN)
  Receive Date: 20210322
  Receipt Date: 20210322
  Transmission Date: 20210420
  Serious: No
  Sender: FDA-Public Use
  Company Number: IN-ALKEM LABORATORIES LIMITED-IN-ALKEM-2021-00382

PATIENT
  Age: 35 Year
  Sex: Female

DRUGS (2)
  1. TRIHEXYPHENIDYL [Concomitant]
     Active Substance: TRIHEXYPHENIDYL
     Indication: ACUTE PSYCHOSIS
     Dosage: 2 MILLIGRAM, QD
     Route: 065
  2. ARIPIPRAZOLE. [Suspect]
     Active Substance: ARIPIPRAZOLE
     Indication: ACUTE PSYCHOSIS
     Dosage: 10 MILLIGRAM, QD
     Route: 065

REACTIONS (1)
  - Salivary hypersecretion [Recovered/Resolved]
